FAERS Safety Report 16686563 (Version 1)
Quarter: 2019Q3

REPORT INFORMATION
  Report Type: Spontaneous
  Country: US (occurrence: US)
  Receive Date: 20190809
  Receipt Date: 20190809
  Transmission Date: 20191004
  Serious: No
  Sender: FDA-Public Use
  Company Number: US-ASTRAZENECA-2019SF01747

PATIENT
  Age: 21491 Day
  Sex: Female
  Weight: 69.4 kg

DRUGS (3)
  1. FASLODEX [Suspect]
     Active Substance: FULVESTRANT
     Indication: OVARIAN CANCER RECURRENT
     Dosage: ONE INJECTION EVERY TWO WEEKS FOR FIRST THREE INJECTIONS
     Route: 030
     Dates: start: 2019
  2. FASLODEX [Suspect]
     Active Substance: FULVESTRANT
     Indication: OVARIAN CANCER RECURRENT
     Dosage: ONE INJECTION MONTHLY
     Route: 030
  3. TYLENOL ARTHRITIS PAIN [Concomitant]
     Active Substance: ACETAMINOPHEN
     Indication: ARTHRITIS

REACTIONS (1)
  - Alopecia [Not Recovered/Not Resolved]

NARRATIVE: CASE EVENT DATE: 20190708
